FAERS Safety Report 15907636 (Version 2)
Quarter: 2020Q2

REPORT INFORMATION
  Report Type: Report from Study
  Country: US (occurrence: US)
  Receive Date: 20190204
  Receipt Date: 20200409
  Transmission Date: 20200713
  Serious: Yes (Hospitalization, Other)
  Sender: FDA-Public Use
  Company Number: US-SA-2019SA026308

PATIENT
  Age: 63 Year
  Sex: Female

DRUGS (2)
  1. INSULIN GLARGINE [Suspect]
     Active Substance: INSULIN GLARGINE
     Indication: DIABETES MELLITUS
     Dosage: 50 IU, QD
     Route: 058
  2. INSULIN GLARGINE [Suspect]
     Active Substance: INSULIN GLARGINE
     Dosage: 45 IU, QD
     Route: 058

REACTIONS (10)
  - Meniscus injury [Recovered/Resolved]
  - Asthma [Unknown]
  - Myocardial infarction [Recovered/Resolved]
  - Patellofemoral pain syndrome [Unknown]
  - Intentional product use issue [Unknown]
  - Atrial fibrillation [Recovered/Resolved]
  - Back pain [Unknown]
  - Fibromyalgia [Unknown]
  - Cerebrovascular accident [Recovered/Resolved]
  - Meniscus injury [Unknown]

NARRATIVE: CASE EVENT DATE: 201806
